FAERS Safety Report 18677324 (Version 1)
Quarter: 2020Q4

REPORT INFORMATION
  Report Type: Spontaneous
  Country: JP (occurrence: JP)
  Receive Date: 20201229
  Receipt Date: 20201229
  Transmission Date: 20210114
  Serious: Yes (Hospitalization, Other)
  Sender: FDA-Public Use
  Company Number: JP-PFIZER INC-2020506384

PATIENT
  Age: 78 Year
  Sex: Female

DRUGS (1)
  1. PREGABALIN. [Suspect]
     Active Substance: PREGABALIN
     Indication: BACK PAIN
     Dosage: UNK

REACTIONS (4)
  - Respiratory failure [Unknown]
  - Respiratory arrest [Unknown]
  - Cardio-respiratory arrest [Unknown]
  - Amyotrophic lateral sclerosis [Unknown]
